FAERS Safety Report 18570794 (Version 1)
Quarter: 2020Q4

REPORT INFORMATION
  Report Type: Spontaneous
  Country: US (occurrence: US)
  Receive Date: 20201202
  Receipt Date: 20201202
  Transmission Date: 20210114
  Serious: No
  Sender: FDA-Public Use
  Company Number: US-TAKEDA-2020TUS052478

PATIENT
  Sex: Female
  Weight: 83.45 kg

DRUGS (34)
  1. VITAMIN C [Concomitant]
     Active Substance: ASCORBIC ACID
  2. ACETAMINOPHEN. [Concomitant]
     Active Substance: ACETAMINOPHEN
  3. MULTIVITAMINS [VITAMINS NOS] [Concomitant]
     Active Substance: VITAMINS
  4. DEGLYCYRRHIZINISED LIQUORICE [Concomitant]
  5. DICYCLOMINE CO [Concomitant]
  6. PROBIOTIC 10 [Concomitant]
     Active Substance: DIETARY SUPPLEMENT\PROBIOTICS
  7. BERBERINE [Concomitant]
     Active Substance: BERBERINE
  8. LIDOCAINE. [Concomitant]
     Active Substance: LIDOCAINE
  9. CALCIUM PLUS D3 [Concomitant]
  10. CUVITRU [Suspect]
     Active Substance: HUMAN IMMUNOGLOBULIN G
     Indication: IMMUNODEFICIENCY COMMON VARIABLE
     Dosage: 250MG/KG
     Route: 058
     Dates: start: 20170914
  11. HEPATONE [Concomitant]
  12. CEPHALEXINE [Concomitant]
     Active Substance: CEPHALEXIN
  13. OMEGA-3 IQ [Concomitant]
  14. DIPHENHYDRAMINE. [Concomitant]
     Active Substance: DIPHENHYDRAMINE
  15. PROPAFENONE [PROPAFENONE HYDROCHLORIDE] [Concomitant]
     Active Substance: PROPAFENONE
  16. XARELTO [Concomitant]
     Active Substance: RIVAROXABAN
  17. VITAMIN D3 [Concomitant]
     Active Substance: CHOLECALCIFEROL
  18. NIACINAMIDE [Concomitant]
     Active Substance: NIACINAMIDE
  19. FOLIC ACID;VITAMIN B12 [Concomitant]
  20. METOPROLOL [METOPROLOL TARTRATE] [Concomitant]
     Active Substance: METOPROLOL TARTRATE
  21. DIGESTIVE ENZYMES [AMYLASE;CELLULASE;LIPASE;MALTASE;PROTEASE;SUCRASE;T [Concomitant]
  22. MECLIZINE [Concomitant]
     Active Substance: MECLIZINE HYDROCHLORIDE
  23. LOSARTAN. [Concomitant]
     Active Substance: LOSARTAN
  24. OMEGA-3 FISH OIL +VITAMIN D [Concomitant]
  25. BETAINE [Concomitant]
     Active Substance: BETAINE
  26. COENZYME Q10 [Concomitant]
     Active Substance: DIETARY SUPPLEMENT\UBIDECARENONE
  27. AMLODIPINE [AMLODIPINE MESILATE] [Concomitant]
  28. B-COMPLEX PLUS VITAMIN C [Concomitant]
  29. FERRACTIV [Concomitant]
  30. EPINEPHRINE. [Concomitant]
     Active Substance: EPINEPHRINE
  31. MINERAL [Concomitant]
  32. LIOTHYRONINE [Concomitant]
     Active Substance: LIOTHYRONINE
  33. VITAMIN B12 [MECOBALAMIN] [Concomitant]
  34. RABEPRAZOLE [Concomitant]
     Active Substance: RABEPRAZOLE

REACTIONS (1)
  - Vulvovaginal dryness [Unknown]
